FAERS Safety Report 7207232-8 (Version None)
Quarter: 2010Q4

REPORT INFORMATION
  Report Type: 
  Country: None (occurrence: None)
  Receive Date: 20101221
  Receipt Date: 20101214
  Transmission Date: 20110411
  Serious: Yes (Death)
  Sender: FDA-Public Use
  Company Number: 2010US005052

PATIENT
  Age: 20 Year
  Sex: Male
  Weight: 75 kg

DRUGS (6)
  1. PROGRAF [Suspect]
     Indication: HEART TRANSPLANT
     Dosage: 1 MG, BID, ORAL
     Route: 048
     Dates: start: 19971127
  2. COREG [Concomitant]
  3. PRAVACHOL [Concomitant]
  4. LASIX [Concomitant]
  5. ASPIRIN [Concomitant]
  6. BACTRIM [Concomitant]

REACTIONS (1)
  - CARDIAC ARREST [None]
